FAERS Safety Report 6572008-1 (Version None)
Quarter: 2010Q1

REPORT INFORMATION
  Report Type: 
  Country: None (occurrence: None)
  Receive Date: 20100201
  Receipt Date: 20100120
  Transmission Date: 20100710
  Serious: Yes (Death)
  Sender: FDA-Public Use
  Company Number: 2010000333

PATIENT
  Age: 66 Year
  Sex: Female

DRUGS (4)
  1. MODAFINIL [Suspect]
     Dosage: ORAL
     Route: 048
  2. LITHIUM CARBONATE [Suspect]
  3. QUETIAPINE FUMARATE [Suspect]
  4. DIAZEPAM [Suspect]

REACTIONS (1)
  - COMPLETED SUICIDE [None]
